FAERS Safety Report 19255629 (Version 1)
Quarter: 2021Q2

REPORT INFORMATION
  Report Type: Spontaneous
  Country: GB (occurrence: GB)
  Receive Date: 20210513
  Receipt Date: 20210513
  Transmission Date: 20210717
  Serious: Yes (Other)
  Sender: FDA-Public Use
  Company Number: GB-TEVA-2021-GB-1911067

PATIENT
  Age: 72 Year
  Sex: Female
  Weight: 78.92 kg

DRUGS (5)
  1. ROSUVASTATIN. [Suspect]
     Active Substance: ROSUVASTATIN
     Indication: HYPERCHOLESTEROLAEMIA
     Dosage: 10 MILLIGRAM DAILY;
     Route: 048
     Dates: start: 20100101, end: 20210115
  2. ASPIRIN COATED [Concomitant]
     Active Substance: ASPIRIN
  3. SIMVASTATIN. [Suspect]
     Active Substance: SIMVASTATIN
     Indication: HYPERCHOLESTEROLAEMIA
     Dosage: 20 MG
     Route: 048
     Dates: start: 19970501, end: 20100101
  4. LANSOPRAZOLE. [Concomitant]
     Active Substance: LANSOPRAZOLE
  5. ATORVASTATIN [Suspect]
     Active Substance: ATORVASTATIN
     Indication: HYPERCHOLESTEROLAEMIA
     Dosage: 10 MILLIGRAM DAILY;
     Route: 048
     Dates: start: 20210113

REACTIONS (4)
  - Weight loss poor [Unknown]
  - Weight decreased [Unknown]
  - Pain in extremity [Not Recovered/Not Resolved]
  - Abnormal weight gain [Unknown]

NARRATIVE: CASE EVENT DATE: 20160101
